FAERS Safety Report 7404557-8 (Version None)
Quarter: 2011Q2

REPORT INFORMATION
  Report Type: 
  Country: None (occurrence: None)
  Receive Date: 20110411
  Receipt Date: 20110401
  Transmission Date: 20111010
  Serious: Yes (Hospitalization)
  Sender: FDA-Public Use
  Company Number: JP-AMGEN-JPNSP2011008054

PATIENT
  Age: 86 Year
  Sex: Female

DRUGS (7)
  1. BASEN [Concomitant]
     Dosage: 0.2 MG, 2X/DAY
     Route: 048
  2. RHEUMATREX [Concomitant]
     Indication: RHEUMATOID ARTHRITIS
     Dosage: 6 MG, WEEKLY
     Route: 048
     Dates: start: 20100301, end: 20110207
  3. AMARYL [Concomitant]
     Dosage: 2 MG, 2X/DAY
     Route: 048
  4. ACTOS [Concomitant]
     Dosage: 15 MG, 1X/DAY
     Route: 048
  5. PREDONINE                          /00016201/ [Concomitant]
     Dosage: 2.5 MG, 1X/DAY
     Route: 048
     Dates: start: 20100301, end: 20110207
  6. ENBREL [Suspect]
     Indication: RHEUMATOID ARTHRITIS
     Dosage: 50 MG, ONCE EVERY TWO WEEKS
     Route: 058
     Dates: start: 20100929, end: 20110207
  7. RIMATIL [Concomitant]
     Dosage: 50 MG, 2X/DAY
     Route: 048
     Dates: start: 20100301, end: 20110207

REACTIONS (3)
  - INFLUENZA [None]
  - HYPOGLYCAEMIA [None]
  - NASOPHARYNGITIS [None]
